FAERS Safety Report 21696108 (Version 1)
Quarter: 2022Q4

REPORT INFORMATION
  Report Type: Spontaneous
  Country: FR (occurrence: FR)
  Receive Date: 20221207
  Receipt Date: 20221207
  Transmission Date: 20230113
  Serious: Yes (Other)
  Sender: FDA-Public Use
  Company Number: None

PATIENT
  Age: 86 Year
  Sex: Male

DRUGS (2)
  1. ZYCLARA [Suspect]
     Active Substance: IMIQUIMOD
     Indication: Actinic keratosis
     Route: 003
     Dates: start: 20220601, end: 20220615
  2. ZYCLARA [Suspect]
     Active Substance: IMIQUIMOD
     Dosage: DRUG WAS REINTRODUCED
     Route: 003

REACTIONS (3)
  - Skin necrosis [Recovered/Resolved]
  - Purpura [Recovered/Resolved]
  - Rash papular [Recovered/Resolved]

NARRATIVE: CASE EVENT DATE: 20220618
